FAERS Safety Report 4969864-7 (Version None)
Quarter: 2006Q2

REPORT INFORMATION
  Report Type: 
  Country: None (occurrence: None)
  Receive Date: 20060411
  Receipt Date: 20051025
  Transmission Date: 20061013
  Serious: Yes (Hospitalization)
  Sender: FDA-Public Use
  Company Number: PR-MERCK-0510USA08999

PATIENT
  Age: 57 Year
  Sex: Female
  Weight: 59 kg

DRUGS (6)
  1. VIOXX [Suspect]
     Indication: MYALGIA
     Route: 048
     Dates: start: 20030101, end: 20041001
  2. GLUCOPHAGE [Concomitant]
     Indication: DIABETES MELLITUS
     Route: 065
  3. CAPTOPRIL MSD [Concomitant]
     Route: 048
  4. NORVASC [Concomitant]
     Route: 065
  5. CRESTOR [Concomitant]
     Route: 065
  6. CALAN [Concomitant]
     Route: 065

REACTIONS (10)
  - ACUTE CORONARY SYNDROME [None]
  - ACUTE MYOCARDIAL INFARCTION [None]
  - ANGINA PECTORIS [None]
  - CORONARY ARTERY DISEASE [None]
  - HYPERTENSION [None]
  - HYPERTHYROIDISM [None]
  - NORMOCHROMIC NORMOCYTIC ANAEMIA [None]
  - PNEUMONIA [None]
  - PULMONARY OEDEMA [None]
  - VITAMIN B12 DEFICIENCY [None]
